FAERS Safety Report 9236841 (Version 1)
Quarter: 2013Q2

REPORT INFORMATION
  Report Type: Other
  Country: GB (occurrence: GB)
  Receive Date: 20130417
  Receipt Date: 20130417
  Transmission Date: 20140414
  Serious: Yes (Other)
  Sender: FDA-Public Use
  Company Number: GB-ACTAVIS-2013-06637

PATIENT
  Age: 66 Year
  Sex: Male

DRUGS (4)
  1. INDAPAMIDE (UNKNOWN) [Suspect]
     Indication: HYPERTENSION
     Dosage: 1.5 MG, UNK
     Route: 048
     Dates: start: 20130308, end: 20130325
  2. DILTIAZEM [Concomitant]
     Indication: PRODUCT USED FOR UNKNOWN INDICATION
     Dosage: 120 MG,BID
     Route: 065
  3. CANDESARTAN /01349502/ [Concomitant]
     Indication: PRODUCT USED FOR UNKNOWN INDICATION
     Dosage: 32 MG, DAILY
     Route: 065
  4. ASPIRIN [Concomitant]
     Indication: PRODUCT USED FOR UNKNOWN INDICATION
     Dosage: 75 MG, DAILY

REACTIONS (1)
  - Lacrimation increased [Unknown]
